FAERS Safety Report 9397341 (Version 1)
Quarter: 2013Q3

REPORT INFORMATION
  Report Type: Spontaneous
  Country: US (occurrence: None)
  Receive Date: 20130711
  Receipt Date: 20130711
  Transmission Date: 20140515
  Serious: Yes (Hospitalization)
  Sender: FDA-Public Use
  Company Number: None

PATIENT
  Age: 53 Year
  Sex: Male
  Weight: 105.7 kg

DRUGS (3)
  1. PACLITAXEL [Suspect]
  2. CARBOPLATIN [Suspect]
  3. BEVACIZUMAB [Suspect]

REACTIONS (4)
  - Oedema genital [None]
  - Pyrexia [None]
  - Scrotal pain [None]
  - Proctalgia [None]
